FAERS Safety Report 7678936-8 (Version None)
Quarter: 2011Q3

REPORT INFORMATION
  Report Type: 
  Country: None (occurrence: None)
  Receive Date: 20110812
  Receipt Date: 20110803
  Transmission Date: 20111222
  Serious: No
  Sender: FDA-Public Use
  Company Number: US-BIOGENIDEC-2011BI027393

PATIENT
  Age: 60 Year
  Sex: Male

DRUGS (1)
  1. TYSABRI [Suspect]
     Indication: MULTIPLE SCLEROSIS
     Route: 042
     Dates: start: 20110411, end: 20110701

REACTIONS (4)
  - MULTIPLE SCLEROSIS RELAPSE [None]
  - DIPLOPIA [None]
  - STRABISMUS [None]
  - CENTRAL NERVOUS SYSTEM LESION [None]
